FAERS Safety Report 9289528 (Version 2)
Quarter: 2013Q2

REPORT INFORMATION
  Report Type: Spontaneous
  Country: BE (occurrence: BE)
  Receive Date: 20130515
  Receipt Date: 20130603
  Transmission Date: 20140414
  Serious: Yes (Life-Threatening, Hospitalization, Other)
  Sender: FDA-Public Use
  Company Number: BE-AMGEN-BELSP2013033835

PATIENT
  Age: 66 Year
  Sex: Female
  Weight: 76.1 kg

DRUGS (9)
  1. ENBREL [Suspect]
     Indication: RHEUMATOID ARTHRITIS
     Dosage: 50 MG, WEEKLY
     Route: 065
     Dates: start: 201204, end: 20130121
  2. ARAVA [Concomitant]
     Dosage: 10 MG, 1X/DAY
     Route: 048
     Dates: start: 201108
  3. ALDACTAZINE [Concomitant]
     Dosage: UNK
     Route: 048
  4. CARDIOASPIRINE [Concomitant]
     Dosage: 100 MG, 1X/DAY
     Route: 048
     Dates: start: 201004
  5. SIMVASTATIN [Concomitant]
     Dosage: 20 MG, 1X/DAY
     Route: 048
     Dates: start: 201004
  6. L-THYROXIN [Concomitant]
     Dosage: 75 MG, 1X/DAY
     Route: 048
  7. COVERSYL                           /00790702/ [Concomitant]
     Dosage: 10 MG, 1X/DAY
     Route: 048
     Dates: start: 201004
  8. GLUCOPHAGE [Concomitant]
     Dosage: UNK
     Route: 048
  9. PANTOMED                           /00178901/ [Concomitant]
     Dosage: 40 MG, 1X/DAY
     Route: 048
     Dates: start: 201208

REACTIONS (2)
  - Colon cancer [Unknown]
  - Hereditary non-polyposis colorectal cancer syndrome [Unknown]
